FAERS Safety Report 5296329-8 (Version None)
Quarter: 2007Q1

REPORT INFORMATION
  Report Type: 
  Country: None (occurrence: None)
  Receive Date: 20070201
  Receipt Date: 20061016
  Transmission Date: 20070707
  Serious: No
  Sender: FDA-Public Use
  Company Number: 2006PV023353

PATIENT
  Age: 44 Year
  Sex: Female
  Weight: 145.151 kg

DRUGS (1)
  1. BYETTA [Suspect]
     Indication: POLYCYSTIC OVARIES
     Dosage: 5 MCG; BID; SC
     Route: 058
     Dates: start: 20061008

REACTIONS (7)
  - BLOOD GLUCOSE DECREASED [None]
  - DIARRHOEA [None]
  - DIZZINESS [None]
  - MALAISE [None]
  - NAUSEA [None]
  - VOMITING [None]
  - WEIGHT DECREASED [None]
